FAERS Safety Report 26171564 (Version 2)
Quarter: 2025Q4

REPORT INFORMATION
  Report Type: Spontaneous
  Country: US (occurrence: US)
  Receive Date: 20251217
  Receipt Date: 20251222
  Transmission Date: 20260118
  Serious: Yes (Other)
  Sender: BRACCO
  Company Number: US-BRACCO-2025US08594

PATIENT
  Age: 65 Year
  Sex: Female
  Weight: 131.9 kg

DRUGS (9)
  1. LUMASON [Suspect]
     Active Substance: SULFUR HEXAFLUORIDE
     Indication: Echocardiogram
     Dosage: 2 ML, SINGLE
     Dates: start: 20251205, end: 20251205
  2. LUMASON [Suspect]
     Active Substance: SULFUR HEXAFLUORIDE
  3. LUMASON [Suspect]
     Active Substance: SULFUR HEXAFLUORIDE
  4. SODIUM CHLORIDE [Concomitant]
     Active Substance: SODIUM CHLORIDE
     Dosage: 5 ML
  5. VITAMINS [Concomitant]
     Active Substance: VITAMINS
  6. TYLENOL [Concomitant]
     Active Substance: ACETAMINOPHEN
  7. METOPROLOL [Concomitant]
     Active Substance: METOPROLOL
     Dosage: 25 MG
  8. OLMESARTAN MEDOXOMIL [Concomitant]
     Active Substance: OLMESARTAN MEDOXOMIL
     Dosage: 20 MG
  9. WARFARIN SODIUM [Concomitant]
     Active Substance: WARFARIN SODIUM

REACTIONS (2)
  - Hypersensitivity [Recovering/Resolving]
  - Presyncope [Recovering/Resolving]

NARRATIVE: CASE EVENT DATE: 20251205
